FAERS Safety Report 10189603 (Version 1)
Quarter: 2014Q2

REPORT INFORMATION
  Report Type: Spontaneous
  Country: US (occurrence: US)
  Receive Date: 20140522
  Receipt Date: 20140522
  Transmission Date: 20141212
  Serious: Yes (Other)
  Sender: FDA-Public Use
  Company Number: US-GLAXOSMITHKLINE-A1074247A

PATIENT
  Age: 66 Year
  Sex: Female

DRUGS (4)
  1. ALBUTEROL SULFATE [Suspect]
     Indication: PRODUCT USED FOR UNKNOWN INDICATION
     Route: 065
  2. PENICILLIN [Suspect]
     Indication: PRODUCT USED FOR UNKNOWN INDICATION
     Route: 065
  3. SEROQUEL [Suspect]
     Indication: PRODUCT USED FOR UNKNOWN INDICATION
     Route: 065
  4. PROMACTA [Concomitant]

REACTIONS (3)
  - Myocardial infarction [Unknown]
  - Rash [Unknown]
  - Hypersensitivity [Unknown]
